FAERS Safety Report 5755783-5 (Version None)
Quarter: 2008Q2

REPORT INFORMATION
  Report Type: 
  Country: None (occurrence: None)
  Receive Date: 20080530
  Receipt Date: 20080530
  Transmission Date: 20081010
  Serious: Yes (Life-Threatening, Hospitalization)
  Sender: FDA-Public Use
  Company Number: None

PATIENT
  Sex: Male
  Weight: 125.1928 kg

DRUGS (2)
  1. BYETTA [Suspect]
     Indication: OBESITY
     Dosage: 5MG BID SQ
     Route: 058
     Dates: start: 20080401, end: 20080522
  2. BYETTA [Suspect]
     Indication: TYPE 2 DIABETES MELLITUS
     Dosage: 5MG BID SQ
     Route: 058
     Dates: start: 20080401, end: 20080522

REACTIONS (4)
  - ACUTE HEPATIC FAILURE [None]
  - DISSEMINATED INTRAVASCULAR COAGULATION [None]
  - HEPATIC NECROSIS [None]
  - HEPATIC STEATOSIS [None]
